FAERS Safety Report 10243182 (Version 1)
Quarter: 2014Q2

REPORT INFORMATION
  Report Type: Spontaneous
  Country: DE (occurrence: DE)
  Receive Date: 20140618
  Receipt Date: 20140618
  Transmission Date: 20141212
  Serious: Yes (Other)
  Sender: FDA-Public Use
  Company Number: DE-JNJFOC-20140602026

PATIENT
  Age: 1 Day
  Sex: Male
  Weight: 1.66 kg

DRUGS (6)
  1. DOXORUBICIN [Suspect]
     Indication: FOETAL EXPOSURE DURING PREGNANCY
     Route: 064
     Dates: start: 20131101, end: 20131116
  2. RITUXIMAB [Suspect]
     Indication: B-CELL LYMPHOMA
     Route: 064
     Dates: start: 20131031, end: 20131115
  3. PREDNISOLONE [Suspect]
     Indication: B-CELL LYMPHOMA
     Route: 064
     Dates: start: 20131101, end: 20131120
  4. NEULASTA [Suspect]
     Indication: PRODUCT USED FOR UNKNOWN INDICATION
     Route: 064
  5. CYCLOPHOSPHAMIDE [Suspect]
     Indication: B-CELL LYMPHOMA
     Route: 064
     Dates: start: 20131101, end: 20131116
  6. VINCRISTINE [Suspect]
     Indication: B-CELL LYMPHOMA
     Route: 064
     Dates: start: 20131101, end: 20131116

REACTIONS (6)
  - Anaemia [Unknown]
  - Inguinal hernia [Recovered/Resolved with Sequelae]
  - Granulocytopenia neonatal [Unknown]
  - Low birth weight baby [Unknown]
  - Premature baby [Not Recovered/Not Resolved]
  - Foetal exposure during pregnancy [Recovered/Resolved]
